FAERS Safety Report 19396985 (Version 1)
Quarter: 2021Q2

REPORT INFORMATION
  Report Type: Spontaneous
  Country: US (occurrence: US)
  Receive Date: 20210609
  Receipt Date: 20210609
  Transmission Date: 20210717
  Serious: No
  Sender: FDA-Public Use
  Company Number: NVSC2021US129216

PATIENT
  Sex: Female

DRUGS (1)
  1. ZARXIO [Suspect]
     Active Substance: FILGRASTIM-SNDZ
     Indication: AGRANULOCYTOSIS
     Dosage: 480 MG
     Route: 058

REACTIONS (3)
  - Diarrhoea [Unknown]
  - Fatigue [Unknown]
  - Bone pain [Unknown]
